FAERS Safety Report 21325650 (Version 1)
Quarter: 2022Q3

REPORT INFORMATION
  Report Type: Report from Study
  Country: DZ (occurrence: DZ)
  Receive Date: 20220912
  Receipt Date: 20220912
  Transmission Date: 20221026
  Serious: Yes (Hospitalization)
  Sender: FDA-Public Use
  Company Number: DZ-BAYER-2022A126138

PATIENT
  Age: 22 Year
  Sex: Male

DRUGS (1)
  1. VENTAVIS [Suspect]
     Active Substance: ILOPROST
     Indication: Pulmonary arterial hypertension
     Dosage: 2 ML, QD
     Route: 055
     Dates: start: 201702, end: 202209

REACTIONS (1)
  - Respiratory arrest [Unknown]

NARRATIVE: CASE EVENT DATE: 20220905
